FAERS Safety Report 8052157-1 (Version None)
Quarter: 2012Q1

REPORT INFORMATION
  Report Type: 
  Country: None (occurrence: None)
  Receive Date: 20120118
  Receipt Date: 20120113
  Transmission Date: 20120608
  Serious: No
  Sender: FDA-Public Use
  Company Number: US-PFIZER INC-2012010994

PATIENT
  Age: 49 Year
  Sex: Female
  Weight: 54.4 kg

DRUGS (5)
  1. TIZANIDINE [Concomitant]
     Dosage: UNK
  2. KETOROLAC [Concomitant]
     Dosage: UNK
  3. LYRICA [Suspect]
     Indication: NEUROPATHY PERIPHERAL
     Dosage: UNK
     Dates: start: 20120101
  4. MORPHINE [Concomitant]
     Dosage: UNK
  5. LYRICA [Suspect]
     Indication: SPINAL OPERATION

REACTIONS (2)
  - OEDEMA [None]
  - OEDEMA PERIPHERAL [None]
